FAERS Safety Report 8024364-5 (Version None)
Quarter: 2012Q1

REPORT INFORMATION
  Report Type: 
  Country: None (occurrence: None)
  Receive Date: 20120105
  Receipt Date: 20120103
  Transmission Date: 20120608
  Serious: Yes (Hospitalization)
  Sender: FDA-Public Use
  Company Number: PHHY2012NL000659

PATIENT
  Sex: Male

DRUGS (9)
  1. ZOMETA [Suspect]
     Dosage: 4 MG/5 ML, ONCE PER 28 DAYS
     Route: 042
     Dates: start: 20120103
  2. ZOMETA [Suspect]
     Dosage: 4 MG/5ML, ONCE PER 28 DAYS
     Route: 042
     Dates: start: 20111206
  3. ZOMETA [Suspect]
     Indication: PROSTATE CANCER METASTATIC
     Dosage: 4 MG/5ML, ONCE PER 28 DAYS
     Route: 042
  4. METOPROLOL SUCCINATE [Concomitant]
     Dosage: 100 MG X 1
  5. SODIUM BICARBONATE [Concomitant]
     Dosage: 500 MG, 3X3 TABLETS
  6. OXAZEPAM [Concomitant]
     Dosage: 10 MG X 1
  7. ZOMETA [Suspect]
     Dosage: 4 MG/5ML, ONCE PER 28 DAYS
     Route: 042
     Dates: start: 20080904
  8. ASCAL [Concomitant]
     Dosage: 100 MG X1
  9. ALFACALCIDOL [Concomitant]
     Dosage: 0.25MG X1

REACTIONS (1)
  - GASTROINTESTINAL HAEMORRHAGE [None]
